FAERS Safety Report 4853695-2 (Version None)
Quarter: 2005Q4

REPORT INFORMATION
  Report Type: 
  Country: None (occurrence: None)
  Receive Date: 20051214
  Receipt Date: 20051207
  Transmission Date: 20060501
  Serious: Yes (Hospitalization, Other)
  Sender: FDA-Public Use
  Company Number: PHBS2005JP18169

PATIENT
  Age: 43 Year
  Sex: Male

DRUGS (4)
  1. CYCLOSPORINE [Suspect]
     Indication: TRANSPLANT
     Route: 065
  2. AZATHIOPRINE [Concomitant]
     Dates: start: 19980101
  3. PREDNISOLONE [Concomitant]
  4. CELLCEPT [Concomitant]
     Dates: start: 19980101

REACTIONS (4)
  - DIABETES MELLITUS [None]
  - ENDOCARDITIS [None]
  - TRANSPLANT REJECTION [None]
  - TRICUSPID VALVE INCOMPETENCE [None]
